FAERS Safety Report 6578842-6 (Version None)
Quarter: 2010Q1

REPORT INFORMATION
  Report Type: 
  Country: None (occurrence: None)
  Receive Date: 20100202
  Receipt Date: 20100122
  Transmission Date: 20100710
  Serious: Yes (Hospitalization)
  Sender: FDA-Public Use
  Company Number: 2009AC000411

PATIENT
  Age: 66 Year
  Sex: Female
  Weight: 106.1417 kg

DRUGS (20)
  1. DIGOXIN [Suspect]
     Dosage: 0.25 MG; QD; PO
     Route: 048
     Dates: start: 20060701, end: 20080501
  2. DIGOXIN [Suspect]
     Dosage: .125 MG;QD; PO
     Route: 048
     Dates: start: 20080711, end: 20080726
  3. DIGOXIN [Suspect]
     Dosage: .250 MG;QD;PO
     Route: 048
     Dates: start: 20080728, end: 20080826
  4. DIGOXIN [Suspect]
     Dosage: .250 MG;QD
     Dates: start: 20090501
  5. ACTOS [Concomitant]
  6. MALEATE [Concomitant]
  7. FUROSEMIDE [Concomitant]
  8. ALLOPURINOL [Concomitant]
  9. LIPITOR [Concomitant]
  10. COREG [Concomitant]
  11. GLIPIZIDE [Concomitant]
  12. AMITRIPTYLINE HCL [Concomitant]
  13. CALCITRIOL [Concomitant]
  14. SPIRONOLACTONE [Concomitant]
  15. ENALAPRIL MALEATE [Concomitant]
  16. ZOLPIDEM [Concomitant]
  17. LEVOTHYROXINE SODIUM [Concomitant]
  18. CARVEDILOL [Concomitant]
  19. AMOXICILLIN [Concomitant]
  20. JANUVIA [Concomitant]

REACTIONS (22)
  - ABASIA [None]
  - ACTIVITIES OF DAILY LIVING IMPAIRED [None]
  - ANHEDONIA [None]
  - CARDIOACTIVE DRUG LEVEL INCREASED [None]
  - DEPRESSION [None]
  - DISTURBANCE IN ATTENTION [None]
  - DYSPNOEA [None]
  - ECONOMIC PROBLEM [None]
  - EMOTIONAL DISORDER [None]
  - EMOTIONAL DISTRESS [None]
  - FATIGUE [None]
  - MEMORY IMPAIRMENT [None]
  - MENTAL DISORDER [None]
  - MULTIPLE INJURIES [None]
  - NAUSEA [None]
  - PAIN [None]
  - RESTLESS LEGS SYNDROME [None]
  - SNORING [None]
  - SOMNOLENCE [None]
  - VISUAL IMPAIRMENT [None]
  - VOMITING [None]
  - WEIGHT INCREASED [None]
